FAERS Safety Report 15496342 (Version 4)
Quarter: 2019Q1

REPORT INFORMATION
  Report Type: Report from Study
  Country: AU (occurrence: AU)
  Receive Date: 20181012
  Receipt Date: 20190130
  Transmission Date: 20190417
  Serious: Yes (Hospitalization)
  Sender: FDA-Public Use
  Company Number: AU-BIOGEN-2018BI00643088

PATIENT
  Age: 45 Year
  Sex: Female

DRUGS (1)
  1. PLEGRIDY [Suspect]
     Active Substance: PEGINTERFERON BETA-1A
     Indication: MULTIPLE SCLEROSIS
     Route: 058
     Dates: start: 20150618

REACTIONS (4)
  - Colon adenoma [Unknown]
  - Disorientation [Unknown]
  - Myocardial infarction [Not Recovered/Not Resolved]
  - Oesophagitis [Unknown]

NARRATIVE: CASE EVENT DATE: 20181128
